FAERS Safety Report 12513635 (Version 1)
Quarter: 2016Q2

REPORT INFORMATION
  Report Type: Spontaneous
  Country: US (occurrence: None)
  Receive Date: 20160629
  Receipt Date: 20160629
  Transmission Date: 20160815
  Serious: No
  Sender: FDA-Public Use
  Company Number: None

PATIENT
  Age: 35 Year
  Sex: Male

DRUGS (13)
  1. IBPROFEN [Concomitant]
  2. BISACODYL. [Concomitant]
     Active Substance: BISACODYL
  3. MAG/ALUM/SIMETH [Concomitant]
  4. OXYCODONE [Concomitant]
     Active Substance: OXYCODONE
  5. MILK OF MAG [Concomitant]
  6. BENZTROPINE [Concomitant]
     Active Substance: BENZTROPINE
  7. RISPERIDONE. [Suspect]
     Active Substance: RISPERIDONE
     Route: 048
  8. LISINOPRIL. [Concomitant]
     Active Substance: LISINOPRIL
  9. OMEPRAZOLE. [Concomitant]
     Active Substance: OMEPRAZOLE
  10. FLUOXETINE [Concomitant]
     Active Substance: FLUOXETINE HYDROCHLORIDE
  11. TRIMETH/SULFA [Concomitant]
  12. ACETAMINOPHEN. [Concomitant]
     Active Substance: ACETAMINOPHEN
  13. LORAZEPAM. [Concomitant]
     Active Substance: LORAZEPAM

REACTIONS (1)
  - Tachycardia [None]

NARRATIVE: CASE EVENT DATE: 20150420
